FAERS Safety Report 15859291 (Version 2)
Quarter: 2019Q1

REPORT INFORMATION
  Report Type: Spontaneous
  Country: ES (occurrence: ES)
  Receive Date: 20190123
  Receipt Date: 20190208
  Transmission Date: 20190417
  Serious: Yes (Other)
  Sender: FDA-Public Use
  Company Number: ES-JNJFOC-20190126541

PATIENT
  Age: 29 Year
  Sex: Female

DRUGS (4)
  1. TOPIRAMATE. [Suspect]
     Active Substance: TOPIRAMATE
     Indication: EPILEPSY
     Dosage: INITIAL DOSE 25 MG/24 H FOR 7 DAYS
     Route: 048
  2. TOPIRAMATE. [Suspect]
     Active Substance: TOPIRAMATE
     Indication: MYOCLONIC EPILEPSY
     Dosage: INITIAL DOSE 25 MG/24 H FOR 7 DAYS
     Route: 048
  3. TOPIRAMATE. [Suspect]
     Active Substance: TOPIRAMATE
     Indication: MYOCLONIC EPILEPSY
     Dosage: 50 MG/DAILY FOR 2 DAYS
     Route: 048
  4. TOPIRAMATE. [Suspect]
     Active Substance: TOPIRAMATE
     Indication: EPILEPSY
     Dosage: 50 MG/DAILY FOR 2 DAYS
     Route: 048

REACTIONS (4)
  - Angle closure glaucoma [Recovered/Resolved]
  - Visual acuity reduced [Recovered/Resolved]
  - Maculopathy [Recovered/Resolved]
  - Acute myopia [Recovered/Resolved]
